FAERS Safety Report 12696373 (Version 3)
Quarter: 2016Q4

REPORT INFORMATION
  Report Type: Report from Study
  Country: CA (occurrence: CA)
  Receive Date: 20160830
  Receipt Date: 20161007
  Transmission Date: 20170207
  Serious: Yes (Other)
  Sender: FDA-Public Use
  Company Number: CA-ROCHE-1658735

PATIENT
  Sex: Female

DRUGS (8)
  1. ZOFRAN [Concomitant]
     Active Substance: ONDANSETRON HYDROCHLORIDE
  2. ACTEMRA [Suspect]
     Active Substance: TOCILIZUMAB
     Indication: RHEUMATOID ARTHRITIS
     Route: 042
     Dates: start: 20141218, end: 20160705
  3. ZOLOFT [Concomitant]
     Active Substance: SERTRALINE HYDROCHLORIDE
  4. DILAUDID [Concomitant]
     Active Substance: HYDROMORPHONE HYDROCHLORIDE
  5. INDOMETHACIN. [Concomitant]
     Active Substance: INDOMETHACIN
  6. OXYCODONE [Concomitant]
     Active Substance: OXYCODONE
  7. OXAZEPAM. [Concomitant]
     Active Substance: OXAZEPAM
  8. MORPHINE SR [Concomitant]
     Active Substance: MORPHINE

REACTIONS (11)
  - Neoplasm skin [Unknown]
  - Melanocytic naevus [Unknown]
  - Liver function test increased [Not Recovered/Not Resolved]
  - Infection [Unknown]
  - Pneumonia [Unknown]
  - Bowen^s disease [Not Recovered/Not Resolved]
  - Vulvar dysplasia [Unknown]
  - Nausea [Unknown]
  - Immunodeficiency [Unknown]
  - Osteoporosis [Not Recovered/Not Resolved]
  - Neoplasm [Unknown]

NARRATIVE: CASE EVENT DATE: 2016
